FAERS Safety Report 7207628-4 (Version None)
Quarter: 2011Q1

REPORT INFORMATION
  Report Type: 
  Country: None (occurrence: None)
  Receive Date: 20110103
  Receipt Date: 20101228
  Transmission Date: 20110831
  Serious: Yes (Other)
  Sender: FDA-Public Use
  Company Number: US-AMGEN-USASP2010006408

PATIENT

DRUGS (2)
  1. ENBREL [Suspect]
     Indication: ANKYLOSING SPONDYLITIS
  2. ENBREL [Suspect]
     Indication: RHEUMATOID ARTHRITIS
     Dosage: 50 MG, QWK
     Dates: start: 20101026

REACTIONS (6)
  - INSOMNIA [None]
  - BACK PAIN [None]
  - HEADACHE [None]
  - NASAL CONGESTION [None]
  - HEAD INJURY [None]
  - FALL [None]
